FAERS Safety Report 7937495-2 (Version None)
Quarter: 2011Q4

REPORT INFORMATION
  Report Type: 
  Country: None (occurrence: None)
  Receive Date: 20111123
  Receipt Date: 20111117
  Transmission Date: 20120403
  Serious: Yes (Hospitalization)
  Sender: FDA-Public Use
  Company Number: US-BRISTOL-MYERS SQUIBB COMPANY-16236275

PATIENT
  Age: 58 Year
  Sex: Female

DRUGS (3)
  1. CYTOXAN [Suspect]
     Indication: CHRONIC LYMPHOCYTIC LEUKAEMIA
     Dosage: D1-3. Q28D
     Route: 042
     Dates: start: 20110726, end: 20110726
  2. FLUDARABINE PHOSPHATE [Suspect]
     Indication: CHRONIC LYMPHOCYTIC LEUKAEMIA
     Dosage: D1-3.Q28D
     Route: 042
     Dates: start: 20110726, end: 20110726
  3. RITUXAN [Suspect]
     Indication: CHRONIC LYMPHOCYTIC LEUKAEMIA
     Dosage: D1 Q28D
     Route: 042
     Dates: start: 20110726, end: 20110726

REACTIONS (4)
  - TUMOUR LYSIS SYNDROME [None]
  - PANCYTOPENIA [None]
  - FEBRILE NEUTROPENIA [None]
  - URINARY TRACT INFECTION [None]
